FAERS Safety Report 4971832-6 (Version None)
Quarter: 2006Q2

REPORT INFORMATION
  Report Type: 
  Country: None (occurrence: None)
  Receive Date: 20060407
  Receipt Date: 20060330
  Transmission Date: 20061013
  Serious: Yes (Other)
  Sender: FDA-Public Use
  Company Number: 2006044749

PATIENT
  Age: 73 Year
  Sex: Female
  Weight: 65.7716 kg

DRUGS (5)
  1. LYRICA [Suspect]
     Indication: COMPLEX PARTIAL SEIZURES
     Dosage: 75 MG (75 MG, 1 IN 1 D), ORAL
     Route: 048
     Dates: start: 20060207
  2. ALLEGRA [Suspect]
     Indication: MULTIPLE ALLERGIES
     Dosage: 60 MG (30 MG, 2 IN 1 D)
  3. COFFEE (CAFFEINE) [Suspect]
     Indication: SOMNOLENCE
  4. PRIMIDONE [Concomitant]
  5. TYLENOL [Concomitant]

REACTIONS (19)
  - BONE PAIN [None]
  - CALCINOSIS [None]
  - CONDITION AGGRAVATED [None]
  - CONVULSION [None]
  - DIPLOPIA [None]
  - DIZZINESS [None]
  - DRUG TOLERANCE DECREASED [None]
  - ENDODONTIC PROCEDURE [None]
  - FALL [None]
  - FATIGUE [None]
  - HEAD INJURY [None]
  - MALAISE [None]
  - MULTIPLE ALLERGIES [None]
  - MUSCULOSKELETAL CHEST PAIN [None]
  - PAIN [None]
  - SOMNOLENCE [None]
  - SWELLING FACE [None]
  - URINARY INCONTINENCE [None]
  - WEIGHT INCREASED [None]
